FAERS Safety Report 18249002 (Version 1)
Quarter: 2020Q3

REPORT INFORMATION
  Report Type: Spontaneous
  Country: US (occurrence: US)
  Receive Date: 20200909
  Receipt Date: 20200909
  Transmission Date: 20201103
  Serious: No
  Sender: FDA-Public Use
  Company Number: US-PERRIGO-20US010927

PATIENT

DRUGS (3)
  1. ALBUTEROL SULFATE. [Suspect]
     Active Substance: ALBUTEROL SULFATE
     Dosage: PARTIAL DOSE, PRN
     Route: 055
     Dates: start: 20200706
  2. ALBUTEROL SULFATE. [Suspect]
     Active Substance: ALBUTEROL SULFATE
     Dosage: PARTIAL DOSE TO 180 MCG, PRN
     Route: 055
     Dates: start: 202006, end: 2020
  3. ALBUTEROL SULFATE. [Suspect]
     Active Substance: ALBUTEROL SULFATE
     Indication: ASTHMA
     Dosage: PARTIAL INHALATION TO 180 MCG, PRN
     Route: 055
     Dates: start: 202005, end: 202006

REACTIONS (3)
  - Underdose [Not Recovered/Not Resolved]
  - Drug administered in wrong device [Recovered/Resolved]
  - Device delivery system issue [Not Recovered/Not Resolved]

NARRATIVE: CASE EVENT DATE: 202005
